FAERS Safety Report 14656041 (Version 2)
Quarter: 2018Q2

REPORT INFORMATION
  Report Type: Spontaneous
  Country: FR (occurrence: FR)
  Receive Date: 20180319
  Receipt Date: 20180409
  Transmission Date: 20180711
  Serious: Yes (Hospitalization)
  Sender: FDA-Public Use
  Company Number: FR-SA-2018SA073726

PATIENT
  Age: 80 Year
  Sex: Female
  Weight: 60 kg

DRUGS (10)
  1. FELDENE [Suspect]
     Active Substance: PIROXICAM
     Indication: ARTHROPATHY
     Route: 048
     Dates: start: 201802, end: 20180217
  2. VERSATIS [Concomitant]
     Active Substance: LIDOCAINE
  3. DOLIPRANE [Concomitant]
     Active Substance: ACETAMINOPHEN
  4. OMEPRAZOLE. [Concomitant]
     Active Substance: OMEPRAZOLE
  5. CERIS [Concomitant]
     Active Substance: TROSPIUM CHLORIDE
  6. LEXOMIL [Concomitant]
     Active Substance: BROMAZEPAM
  7. LEVOTHYROX [Concomitant]
     Active Substance: LEVOTHYROXINE
  8. ALLOPURINOL. [Concomitant]
     Active Substance: ALLOPURINOL
  9. IRBESARTAN. [Suspect]
     Active Substance: IRBESARTAN
     Indication: HYPERTENSION
     Route: 048
     Dates: start: 20180214, end: 20180221
  10. EFFEXOR [Suspect]
     Active Substance: VENLAFAXINE HYDROCHLORIDE
     Indication: DEPRESSION
     Route: 048

REACTIONS (1)
  - Colitis ischaemic [Recovered/Resolved]

NARRATIVE: CASE EVENT DATE: 20180216
